FAERS Safety Report 12883009 (Version 1)
Quarter: 2016Q4

REPORT INFORMATION
  Report Type: Spontaneous
  Country: US (occurrence: US)
  Receive Date: 20161025
  Receipt Date: 20161025
  Transmission Date: 20170207
  Serious: No
  Sender: FDA-Public Use
  Company Number: US-SA-2016SA134374

PATIENT
  Age: 67 Year
  Sex: Male

DRUGS (9)
  1. CARDIZEM [Concomitant]
     Active Substance: DILTIAZEM HYDROCHLORIDE
  2. LORATADINE. [Concomitant]
     Active Substance: LORATADINE
  3. LUMIZYME [Suspect]
     Active Substance: ALGLUCOSIDASE ALFA
     Indication: GLYCOGEN STORAGE DISEASE TYPE II
     Route: 041
     Dates: end: 20160720
  4. PROVENTIL [Concomitant]
     Active Substance: ALBUTEROL
  5. OSCAL [Concomitant]
     Active Substance: CALCIUM CARBONATE
  6. FLONASE [Concomitant]
     Active Substance: FLUTICASONE PROPIONATE
     Route: 045
  7. TESTOSTERONE. [Concomitant]
     Active Substance: TESTOSTERONE
  8. LUMIZYME [Suspect]
     Active Substance: ALGLUCOSIDASE ALFA
     Indication: GLYCOGEN STORAGE DISEASE TYPE II
     Route: 041
     Dates: end: 20160720
  9. ALBUTEROL. [Concomitant]
     Active Substance: ALBUTEROL
     Dosage: DOSE: 2.5 MG/3ML

REACTIONS (3)
  - Underdose [Unknown]
  - Device occlusion [Recovered/Resolved]
  - Product deposit [Recovered/Resolved]

NARRATIVE: CASE EVENT DATE: 20160720
